FAERS Safety Report 21623567 (Version 6)
Quarter: 2023Q1

REPORT INFORMATION
  Report Type: Spontaneous
  Country: CA (occurrence: CA)
  Receive Date: 20221121
  Receipt Date: 20230125
  Transmission Date: 20230418
  Serious: Yes (Hospitalization, Other)
  Sender: FDA-Public Use
  Company Number: CA-PFIZER INC-202200339374

PATIENT
  Age: 48 Year
  Sex: Female
  Weight: 68 kg

DRUGS (7)
  1. RUXIENCE [Suspect]
     Active Substance: RITUXIMAB-PVVR
     Indication: Epidermolysis bullosa
     Dosage: 643.5 MG WEEKLY, 4 DOSES - DOSE: 643.5 MG
     Route: 042
     Dates: start: 20220511, end: 20220511
  2. RUXIENCE [Suspect]
     Active Substance: RITUXIMAB-PVVR
     Indication: Systemic lupus erythematosus
     Dosage: 643.5 MG WEEKLY, 4 DOSES - DOSE: 643.5 MG
     Route: 042
     Dates: start: 20220602, end: 20220602
  3. RUXIENCE [Suspect]
     Active Substance: RITUXIMAB-PVVR
     Dosage: 643.5 MG WEEKLY, 4 DOSES-DOSE: 643.5 MG
     Route: 042
     Dates: start: 20220511, end: 20220602
  4. RUXIENCE [Suspect]
     Active Substance: RITUXIMAB-PVVR
     Dosage: 643.5 MG, WEEKLY, 4 DOSES - DOSE: 643.5 MG
     Route: 042
     Dates: start: 20221207
  5. RUXIENCE [Suspect]
     Active Substance: RITUXIMAB-PVVR
     Dosage: 643.5 MG, WEEKLY, 4 DOSES - DOSE: 643.5 MG
     Route: 042
     Dates: start: 20221207
  6. RUXIENCE [Suspect]
     Active Substance: RITUXIMAB-PVVR
     Dosage: 229 MG, (SUPPOSED TO RECEIVE 630 MG), WEEKLY,  WEEKLY, 4 DOSES - DOSE: 6H43.5 MG
     Route: 042
     Dates: start: 20221222
  7. RUXIENCE [Suspect]
     Active Substance: RITUXIMAB-PVVR
     Dosage: 229 MG, (SUPPOSED TO RECEIVE 630 MG), WEEKLY,  WEEKLY, 4 DOSES - DOSE: 6H43.5 MG
     Route: 042
     Dates: start: 20221222

REACTIONS (21)
  - Condition aggravated [Unknown]
  - Hypotension [Unknown]
  - Asthenia [Unknown]
  - Pain of skin [Unknown]
  - Blister [Unknown]
  - Haematemesis [Unknown]
  - Drug effective for unapproved indication [Unknown]
  - Off label use [Unknown]
  - Inappropriate schedule of product administration [Unknown]
  - Incorrect dose administered [Unknown]
  - Epistaxis [Unknown]
  - Chest discomfort [Recovering/Resolving]
  - Nausea [Recovering/Resolving]
  - Dizziness [Recovering/Resolving]
  - Back pain [Unknown]
  - Malaise [Recovering/Resolving]
  - Hypoaesthesia oral [Recovering/Resolving]
  - Swollen tongue [Recovering/Resolving]
  - Speech disorder [Recovering/Resolving]
  - Tachypnoea [Unknown]
  - Abdominal pain [Unknown]

NARRATIVE: CASE EVENT DATE: 20220101
